FAERS Safety Report 8319522-6 (Version None)
Quarter: 2012Q2

REPORT INFORMATION
  Report Type: 
  Country: None (occurrence: None)
  Receive Date: 20120427
  Receipt Date: 20120416
  Transmission Date: 20120825
  Serious: Yes (Other)
  Sender: FDA-Public Use
  Company Number: US-JNJFOC-20120301335

PATIENT
  Sex: Female
  Weight: 113.4 kg

DRUGS (12)
  1. REMICADE [Suspect]
     Indication: CROHN'S DISEASE
     Route: 042
     Dates: start: 20101227
  2. REMICADE [Suspect]
     Route: 042
     Dates: start: 20110930
  3. REMICADE [Suspect]
     Route: 042
     Dates: start: 20110803
  4. REMICADE [Suspect]
     Route: 042
     Dates: start: 20110415
  5. REMICADE [Suspect]
     Dosage: ONCE IN 6-8 WEEKS
     Route: 042
     Dates: start: 20111202
  6. XIFAXAN [Concomitant]
     Route: 065
  7. REMICADE [Suspect]
     Route: 042
     Dates: start: 20110218
  8. REMICADE [Suspect]
     Route: 042
     Dates: start: 20110609
  9. LEXAPRO [Concomitant]
     Route: 065
  10. REMICADE [Suspect]
     Route: 042
     Dates: start: 20100903
  11. TYLENOL [Concomitant]
     Indication: ARTHRITIS
     Route: 065
  12. REMICADE [Suspect]
     Route: 042
     Dates: start: 20101029

REACTIONS (1)
  - LUPUS-LIKE SYNDROME [None]
